FAERS Safety Report 5820874-7 (Version None)
Quarter: 2008Q3

REPORT INFORMATION
  Report Type: 
  Country: None (occurrence: None)
  Receive Date: 20080718
  Receipt Date: 20080718
  Transmission Date: 20090109
  Serious: Yes (Disabling)
  Sender: FDA-Public Use
  Company Number: None

PATIENT
  Sex: Female
  Weight: 90.7194 kg

DRUGS (1)
  1. NUVARING [Suspect]
     Indication: CONTRACEPTION
     Dosage: 1 RING MONTHLY VAG
     Route: 067
     Dates: start: 20040101, end: 20060201

REACTIONS (7)
  - ABDOMINAL DISTENSION [None]
  - ENDOMETRIOSIS [None]
  - INFERTILITY FEMALE [None]
  - MENSTRUATION IRREGULAR [None]
  - SCAR [None]
  - UTERINE LEIOMYOMA [None]
  - WEIGHT INCREASED [None]
